FAERS Safety Report 18509182 (Version 1)
Quarter: 2020Q4

REPORT INFORMATION
  Report Type: Spontaneous
  Country: IT (occurrence: IT)
  Receive Date: 20201117
  Receipt Date: 20201117
  Transmission Date: 20210114
  Serious: Yes (Death, Other)
  Sender: FDA-Public Use
  Company Number: IT-AMGEN-ITASP2020182174

PATIENT
  Age: 61 Year
  Sex: Male

DRUGS (7)
  1. XGEVA [Suspect]
     Active Substance: DENOSUMAB
     Indication: METASTASES TO BONE
     Dosage: 120 MILLIGRAM, Q4WK
     Route: 065
     Dates: start: 201712, end: 201911
  2. LEVOTHYROXIN [Concomitant]
     Active Substance: LEVOTHYROXINE
     Indication: HYPOTHYROIDISM
     Dosage: 60 MILLIGRAM, QD
  3. BEVACIZUMAB. [Concomitant]
     Active Substance: BEVACIZUMAB
     Indication: RENAL CANCER METASTATIC
     Dosage: 25 MILLIGRAM PER MILLILITRE, Q2WK; FOR 6 MONTHS
     Route: 065
     Dates: start: 201706
  4. CABOZANTINIB [Concomitant]
     Active Substance: CABOZANTINIB
     Dosage: 60 MILLIGRAM
  5. ENALAPRIL [Concomitant]
     Active Substance: ENALAPRIL
     Indication: HYPERTENSION
     Dosage: 10 MILLIGRAM, BID
  6. INTERLEUKIN-2 [Concomitant]
     Active Substance: ALDESLEUKIN
     Dosage: 500000 UI, BID, FOR 5 DAYS A WEEK, 3 WEEKS A MONTH
     Route: 058
     Dates: start: 201705
  7. NIVOLUMAB [Concomitant]
     Active Substance: NIVOLUMAB
     Dosage: 10 MILLIGRAM PER MILLILITRE

REACTIONS (5)
  - Osteonecrosis of jaw [Recovering/Resolving]
  - Peri-implantitis [Unknown]
  - General physical health deterioration [Fatal]
  - Tooth avulsion [Unknown]
  - Post procedural discharge [Unknown]
